FAERS Safety Report 9688201 (Version 1)
Quarter: 2013Q4

REPORT INFORMATION
  Report Type: Spontaneous
  Country: IT (occurrence: None)
  Receive Date: 20131112
  Receipt Date: 20131112
  Transmission Date: 20140711
  Serious: Yes (Other)
  Sender: FDA-Public Use
  Company Number: 2013HINLIT0222

PATIENT
  Age: 42 Year
  Sex: Female

DRUGS (5)
  1. TENOFOVIR [Suspect]
     Indication: ANTIRETROVIRAL THERAPY
     Dates: start: 200801
  2. LAMIVUDINE [Suspect]
     Indication: ANTIRETROVIRAL THERAPY
     Dates: start: 200811
  3. ABACAVIR [Suspect]
     Indication: ANTIRETROVIRAL THERAPY
     Dates: start: 200811
  4. EMTRICITABINE [Suspect]
     Indication: ANTIRETROVIRAL THERAPY
     Dates: start: 200801
  5. ATAZANAVIR [Suspect]
     Indication: ANTIRETROVIRAL THERAPY
     Dates: start: 200801

REACTIONS (19)
  - Susac^s syndrome [None]
  - Immune reconstitution inflammatory syndrome [None]
  - Headache [None]
  - Paraesthesia [None]
  - Amaurosis [None]
  - Hemianopia [None]
  - Tinnitus [None]
  - Vertigo [None]
  - Pleocytosis [None]
  - CSF protein increased [None]
  - Retinal vascular occlusion [None]
  - Hypoacusis [None]
  - Nervous system disorder [None]
  - Diabetes mellitus [None]
  - Osteoporosis [None]
  - Spinal fracture [None]
  - Blindness [None]
  - Deafness [None]
  - Cognitive disorder [None]
